FAERS Safety Report 5439291-7 (Version None)
Quarter: 2007Q3

REPORT INFORMATION
  Report Type: 
  Country: None (occurrence: None)
  Receive Date: 20070831
  Receipt Date: 20070827
  Transmission Date: 20080115
  Serious: Yes (Death, Hospitalization)
  Sender: FDA-Public Use
  Company Number: ZA-GILEAD-2007-0013078

PATIENT
  Sex: Male
  Weight: 65 kg

DRUGS (5)
  1. TRUVADA [Suspect]
     Route: 048
     Dates: start: 20070506
  2. STOCRIN [Concomitant]
     Route: 048
  3. RIFAFOUR [Concomitant]
     Indication: TUBERCULOSIS
  4. VITAMIN B6 [Concomitant]
  5. PURBAC DS [Concomitant]

REACTIONS (1)
  - RENAL FAILURE [None]
